FAERS Safety Report 9897431 (Version 2)
Quarter: 2014Q2

REPORT INFORMATION
  Report Type: Spontaneous
  Country: JP (occurrence: JP)
  Receive Date: 20140214
  Receipt Date: 20140602
  Transmission Date: 20141212
  Serious: Yes (Hospitalization)
  Sender: FDA-Public Use
  Company Number: JP-JNJFOC-20140205959

PATIENT
  Age: 67 Year
  Sex: Male
  Weight: 70 kg

DRUGS (8)
  1. XARELTO [Suspect]
     Indication: ATRIAL FIBRILLATION
     Route: 048
     Dates: start: 20120815, end: 20130104
  2. XARELTO [Suspect]
     Indication: CEREBROVASCULAR ACCIDENT PROPHYLAXIS
     Route: 048
     Dates: start: 20120815, end: 20130104
  3. BEPRIDIL [Suspect]
     Indication: ATRIAL FIBRILLATION
     Route: 048
     Dates: start: 20120929, end: 20130104
  4. BEPRIDIL [Suspect]
     Indication: ATRIAL FIBRILLATION
     Route: 048
     Dates: start: 20120922, end: 20120928
  5. URIEF [Concomitant]
     Indication: BENIGN PROSTATIC HYPERPLASIA
     Route: 048
     Dates: start: 20110810
  6. BESACOLIN [Concomitant]
     Indication: NEUROGENIC BLADDER
     Route: 048
     Dates: start: 20110810
  7. ALLEGRA [Concomitant]
     Indication: UPPER RESPIRATORY TRACT INFLAMMATION
     Route: 048
     Dates: start: 20121230, end: 20130104
  8. PRANLUKAST [Concomitant]
     Indication: UPPER RESPIRATORY TRACT INFLAMMATION
     Route: 048
     Dates: start: 20121230, end: 20130104

REACTIONS (1)
  - Interstitial lung disease [Recovered/Resolved]
